FAERS Safety Report 16354194 (Version 1)
Quarter: 2019Q2

REPORT INFORMATION
  Report Type: Report from Study
  Country: US (occurrence: US)
  Receive Date: 20190524
  Receipt Date: 20190524
  Transmission Date: 20190711
  Serious: Yes (Hospitalization)
  Sender: FDA-Public Use
  Company Number: US-ACTELION-A-NJ2019-190854

PATIENT
  Age: 53 Year
  Sex: Male

DRUGS (1)
  1. OPSUMIT [Suspect]
     Active Substance: MACITENTAN
     Indication: PULMONARY ARTERIAL HYPERTENSION
     Dosage: 10 MG, QD
     Route: 048
     Dates: start: 20190119

REACTIONS (7)
  - Headache [Unknown]
  - Acute kidney injury [Unknown]
  - Pneumonia [Unknown]
  - Hypotension [Unknown]
  - Malaise [Unknown]
  - Septic shock [Unknown]
  - Fatigue [Unknown]
